FAERS Safety Report 5064901-6 (Version None)
Quarter: 2006Q3

REPORT INFORMATION
  Report Type: 
  Country: None (occurrence: None)
  Receive Date: 20060726
  Receipt Date: 20060719
  Transmission Date: 20061208
  Serious: Yes (Death)
  Sender: FDA-Public Use
  Company Number: 227660

PATIENT
  Age: 59 Year
  Sex: Female

DRUGS (2)
  1. ALTEPLASE (ALTEPLASE) PWDR + SOLVENT, INFUSION SOLN [Suspect]
     Indication: HAEMORRHAGE
     Dosage: 2 MG, Q12H
  2. SODIUM CHLORIDE [Concomitant]

REACTIONS (1)
  - ARACHNOIDITIS [None]
